FAERS Safety Report 6316443-5 (Version None)
Quarter: 2009Q3

REPORT INFORMATION
  Report Type: 
  Country: None (occurrence: None)
  Receive Date: 20090820
  Receipt Date: 20090720
  Transmission Date: 20100115
  Serious: No
  Sender: FDA-Public Use
  Company Number: US-BAYER-200927241NA

PATIENT
  Age: 21 Year
  Sex: Female

DRUGS (1)
  1. MIRENA [Suspect]
     Indication: CONTRACEPTION
     Route: 015
     Dates: start: 20080115

REACTIONS (10)
  - ABDOMINAL PAIN LOWER [None]
  - BACK PAIN [None]
  - CHILLS [None]
  - FEELING ABNORMAL [None]
  - NAUSEA [None]
  - POST PROCEDURAL HAEMORRHAGE [None]
  - PROCEDURAL PAIN [None]
  - PYREXIA [None]
  - VAGINAL DISCHARGE [None]
  - VAGINAL INFECTION [None]
